FAERS Safety Report 18669422 (Version 2)
Quarter: 2020Q4

REPORT INFORMATION
  Report Type: Spontaneous
  Country: PL (occurrence: PL)
  Receive Date: 20201228
  Receipt Date: 20201231
  Transmission Date: 20210114
  Serious: Yes (Life-Threatening, Hospitalization, Other)
  Sender: FDA-Public Use
  Company Number: NVSC2020PL340806

PATIENT
  Age: 35 Year
  Sex: Male

DRUGS (18)
  1. LAMOTRIGINE. [Interacting]
     Active Substance: LAMOTRIGINE
     Indication: BIPOLAR DISORDER
     Dosage: UNK
     Route: 065
     Dates: start: 201804, end: 201807
  2. AUGMENTIN [Interacting]
     Active Substance: AMOXICILLIN\CLAVULANATE POTASSIUM
     Indication: PYREXIA
  3. AUGMENTIN [Interacting]
     Active Substance: AMOXICILLIN\CLAVULANATE POTASSIUM
     Indication: LYMPHADENOPATHY
  4. SERONIL [Concomitant]
     Active Substance: FLUOXETINE HYDROCHLORIDE
     Indication: BIPOLAR DISORDER
     Dosage: UNK
     Route: 065
  5. DEXAMETHASONE. [Concomitant]
     Active Substance: DEXAMETHASONE
     Indication: PRODUCT USED FOR UNKNOWN INDICATION
     Dosage: UNK
     Route: 065
  6. DEXAPOLCORT [Concomitant]
     Active Substance: DEXAMETHASONE
     Indication: SKIN LESION
     Dosage: UNK, BID
     Route: 061
  7. LIQUID PARAFFIN [Concomitant]
     Active Substance: MINERAL OIL
     Indication: SKIN LESION
     Dosage: UNK, BID
     Route: 061
  8. CYCLOSPORINE. [Suspect]
     Active Substance: CYCLOSPORINE
     Indication: TOXIC EPIDERMAL NECROLYSIS
     Dosage: 200 MG, QD
     Route: 065
     Dates: start: 20180629, end: 20180703
  9. NAPROXEN. [Interacting]
     Active Substance: NAPROXEN
     Indication: MYALGIA
  10. POTASSIUM PERMANGANATE [Concomitant]
     Active Substance: POTASSIUM PERMANGANATE
     Indication: SKIN LESION
     Dosage: UNK, BID
     Route: 061
  11. AUGMENTIN [Interacting]
     Active Substance: AMOXICILLIN\CLAVULANATE POTASSIUM
     Indication: UPPER RESPIRATORY TRACT INFECTION
     Dosage: 3 DF
     Route: 065
     Dates: start: 20180622
  12. NAPROXEN. [Interacting]
     Active Substance: NAPROXEN
     Indication: LYMPHADENOPATHY
  13. AUGMENTIN [Interacting]
     Active Substance: AMOXICILLIN\CLAVULANATE POTASSIUM
     Indication: MYALGIA
  14. NAPROXEN. [Interacting]
     Active Substance: NAPROXEN
     Indication: UPPER RESPIRATORY TRACT INFECTION
     Dosage: UNK
     Route: 065
     Dates: start: 20180622
  15. NAPROXEN. [Interacting]
     Active Substance: NAPROXEN
     Indication: PYREXIA
  16. AUGMENTIN [Interacting]
     Active Substance: AMOXICILLIN\CLAVULANATE POTASSIUM
     Indication: OROPHARYNGEAL PAIN
  17. NAPROXEN. [Interacting]
     Active Substance: NAPROXEN
     Indication: OROPHARYNGEAL PAIN
  18. DEXAVEN [Concomitant]
     Active Substance: DEXAMETHASONE
     Indication: PRODUCT USED FOR UNKNOWN INDICATION
     Dosage: 8 MG, QD
     Route: 042
     Dates: start: 20180629, end: 20180709

REACTIONS (5)
  - Product use in unapproved indication [Unknown]
  - Drug interaction [Recovered/Resolved]
  - Acute respiratory failure [Recovered/Resolved]
  - Haemodynamic instability [Recovered/Resolved]
  - Toxic epidermal necrolysis [Unknown]

NARRATIVE: CASE EVENT DATE: 201806
